FAERS Safety Report 18370373 (Version 5)
Quarter: 2021Q1

REPORT INFORMATION
  Report Type: Spontaneous
  Country: US (occurrence: US)
  Receive Date: 20201012
  Receipt Date: 20210129
  Transmission Date: 20210419
  Serious: No
  Sender: FDA-Public Use
  Company Number: US-SA-2020SA276255

PATIENT
  Age: 71 Year
  Sex: Female

DRUGS (8)
  1. SULFA [SULFANILAMIDE] [Concomitant]
     Active Substance: SULFANILAMIDE
     Dosage: UNK
  2. PREDNISONE. [Suspect]
     Active Substance: PREDNISONE
     Dosage: 2 TABLETS IN THE MORNING AND 1 IN THE AFTERNOON, BID
     Route: 065
  3. PREDNISONE. [Suspect]
     Active Substance: PREDNISONE
     Dosage: 2 TABLETS A DAY
     Route: 065
  4. APIDRA [Suspect]
     Active Substance: INSULIN GLULISINE
     Indication: TYPE 2 DIABETES MELLITUS
     Dosage: 30?32 IU,TID
     Route: 065
     Dates: start: 2015
  5. LANTUS [Suspect]
     Active Substance: INSULIN GLARGINE
     Indication: TYPE 2 DIABETES MELLITUS
     Dosage: 15 IU
     Route: 065
     Dates: start: 2008
  6. LANTUS [Suspect]
     Active Substance: INSULIN GLARGINE
     Dosage: 15 IU
     Route: 065
     Dates: start: 20200418
  7. HUMALOG [Concomitant]
     Active Substance: INSULIN LISPRO
     Dosage: UNK
     Route: 065
  8. NOVOLOG [Concomitant]
     Active Substance: INSULIN ASPART
     Dosage: UNK
     Route: 065

REACTIONS (3)
  - Pyrexia [Unknown]
  - Hyperglycaemia [Unknown]
  - Therapeutic product effect decreased [Unknown]

NARRATIVE: CASE EVENT DATE: 20201002
